FAERS Safety Report 21691878 (Version 3)
Quarter: 2023Q1

REPORT INFORMATION
  Report Type: Report from Study
  Country: NL (occurrence: NL)
  Receive Date: 20221207
  Receipt Date: 20230103
  Transmission Date: 20230417
  Serious: Yes (Hospitalization, Other)
  Sender: FDA-Public Use
  Company Number: NL-ABBVIE-4224234

PATIENT
  Sex: Male

DRUGS (9)
  1. CARBIDOPA\LEVODOPA [Suspect]
     Active Substance: CARBIDOPA\LEVODOPA
     Indication: Parkinson^s disease
     Route: 050
     Dates: start: 20191202
  2. CARBIDOPA\LEVODOPA [Suspect]
     Active Substance: CARBIDOPA\LEVODOPA
     Dosage: CND: 2.1ML/H
     Route: 050
  3. CARBIDOPA\LEVODOPA [Suspect]
     Active Substance: CARBIDOPA\LEVODOPA
     Dosage: MD: 8.0ML, CD: 2.8ML/H, ED: 2.0ML, END: 1.0ML, CND: 2.1ML/H
     Route: 050
  4. CARBIDOPA\LEVODOPA [Suspect]
     Active Substance: CARBIDOPA\LEVODOPA
     Dosage: MD: 8.0ML, CD: 2.8ML/H, ED: 2.0ML
     Route: 050
  5. RIVASTIGMINE [Concomitant]
     Active Substance: RIVASTIGMINE
     Indication: Product used for unknown indication
  6. POLYETHYLENE GLYCOLS [Concomitant]
     Active Substance: POLYETHYLENE GLYCOLS
     Indication: Bowel movement irregularity
  7. ROPINIROLE [Suspect]
     Active Substance: ROPINIROLE
     Indication: Product used for unknown indication
     Route: 065
  8. BENSERAZIDE HYDROCHLORIDE\LEVODOPA [Concomitant]
     Active Substance: BENSERAZIDE HYDROCHLORIDE\LEVODOPA
     Indication: Product used for unknown indication
  9. LEVODOPA [Concomitant]
     Active Substance: LEVODOPA
     Indication: Parkinson^s disease

REACTIONS (7)
  - Pneumonia [Not Recovered/Not Resolved]
  - Angioedema [Not Recovered/Not Resolved]
  - Wheezing [Not Recovered/Not Resolved]
  - Cardiac failure [Not Recovered/Not Resolved]
  - Oedema peripheral [Not Recovered/Not Resolved]
  - Periorbital swelling [Not Recovered/Not Resolved]
  - Unevaluable event [Not Recovered/Not Resolved]
